FAERS Safety Report 7278570-8 (Version None)
Quarter: 2011Q1

REPORT INFORMATION
  Report Type: 
  Country: None (occurrence: None)
  Receive Date: 20110207
  Receipt Date: 20110131
  Transmission Date: 20110831
  Serious: Yes (Death)
  Sender: FDA-Public Use
  Company Number: CHPA2011US01996

PATIENT
  Age: 71 Year
  Sex: Male

DRUGS (6)
  1. ACETAMINOPHEN AND HYDROCODONE BITARTRATE [Suspect]
     Route: 048
  2. DIAZEPAM [Suspect]
     Route: 048
  3. HYDROXYCHLOROQUINE [Suspect]
     Route: 048
  4. PROPOXYPHENE HYDROCHLORIDE [Suspect]
     Route: 048
  5. PREDNISONE [Suspect]
     Route: 048
  6. IBUPROFEN [Suspect]
     Route: 048

REACTIONS (1)
  - COMPLETED SUICIDE [None]
